FAERS Safety Report 12690609 (Version 2)
Quarter: 2016Q4

REPORT INFORMATION
  Report Type: Spontaneous
  Country: US (occurrence: US)
  Receive Date: 20160826
  Receipt Date: 20161020
  Transmission Date: 20170207
  Serious: Yes (Other)
  Sender: FDA-Public Use
  Company Number: US-GLAXOSMITHKLINE-US2016123837

PATIENT
  Sex: Female

DRUGS (2)
  1. TUMS CHEWY DELIGHTS [Suspect]
     Active Substance: CALCIUM CARBONATE
     Dosage: 1 SOFT CHEW
     Dates: start: 20160820, end: 20160822
  2. TUMS CHEWY DELIGHTS [Suspect]
     Active Substance: CALCIUM CARBONATE
     Indication: ABDOMINAL DISCOMFORT
     Dosage: SHE TOOK 2 SOFT CHEWS.
     Dates: start: 20160809

REACTIONS (2)
  - Nausea [Unknown]
  - Haematochezia [Unknown]

NARRATIVE: CASE EVENT DATE: 20160810
